FAERS Safety Report 20838959 (Version 2)
Quarter: 2023Q2

REPORT INFORMATION
  Report Type: Spontaneous
  Country: FR (occurrence: FR)
  Receive Date: 20220517
  Receipt Date: 20230626
  Transmission Date: 20230721
  Serious: Yes (Death, Other)
  Sender: FDA-Public Use
  Company Number: None

PATIENT
  Age: 86 Year
  Sex: Male
  Weight: 67 kg

DRUGS (10)
  1. CLOPIDOGREL BISULFATE [Interacting]
     Active Substance: CLOPIDOGREL BISULFATE
     Indication: Thrombosis prophylaxis
     Dosage: 75 MG, QD
     Route: 048
     Dates: end: 20220420
  2. ESCITALOPRAM OXALATE [Interacting]
     Active Substance: ESCITALOPRAM OXALATE
     Indication: Mixed anxiety and depressive disorder
     Dosage: 10 MG, QD
     Route: 048
     Dates: end: 20220422
  3. PERINDOPRIL [Suspect]
     Active Substance: PERINDOPRIL
     Dosage: 4 MG, QD
     Route: 048
     Dates: end: 20220420
  4. ALTEPLASE [Interacting]
     Active Substance: ALTEPLASE
     Indication: Thrombolysis
     Dosage: 60.3 MG, TOTAL
     Route: 042
     Dates: start: 20220420, end: 20220420
  5. CHOLECALCIFEROL [Concomitant]
     Active Substance: CHOLECALCIFEROL
     Dosage: 0.5 DF, QM
     Route: 048
  6. NITROGLYCERIN [Concomitant]
     Active Substance: NITROGLYCERIN
     Dosage: 1 DF, QD
     Route: 060
     Dates: end: 20220420
  7. NEBIVOLOL [Concomitant]
     Active Substance: NEBIVOLOL
     Dosage: 5 MG, QD
     Route: 048
     Dates: end: 20220422
  8. EZETIMIBE [Concomitant]
     Active Substance: EZETIMIBE
     Dosage: 10 MG, QD
     Route: 048
     Dates: end: 20220422
  9. DUTASTERIDE [Concomitant]
     Active Substance: DUTASTERIDE
     Dosage: 0.5 MG, QD
     Route: 048
     Dates: end: 20220420
  10. ATORVASTATIN [Concomitant]
     Active Substance: ATORVASTATIN
     Dosage: 40 MG, QD
     Route: 048
     Dates: end: 20220422

REACTIONS (2)
  - Haemorrhagic transformation stroke [Fatal]
  - Drug interaction [Fatal]
